FAERS Safety Report 4362995-4 (Version None)
Quarter: 2004Q2

REPORT INFORMATION
  Report Type: 
  Country: None (occurrence: None)
  Receive Date: 20040519
  Receipt Date: 20040504
  Transmission Date: 20050107
  Serious: Yes (Hospitalization)
  Sender: FDA-Public Use
  Company Number: 2003-BP-00651RO

PATIENT
  Sex: Male

DRUGS (4)
  1. PREDNISONE [Suspect]
     Indication: RENAL TRANSPLANT
     Dosage: 2.5 MG (NR), PO
     Route: 048
     Dates: start: 20021021, end: 20021212
  2. BMS224818 (BMS224818 - INVESTIGATIONAL) [Suspect]
     Indication: RENAL TRANSPLANT
     Dosage: 10 MG/KG/DAY (NR, 1 IN 1 D), IV
     Route: 042
     Dates: start: 20021021
  3. BASILIXIMAB [Suspect]
     Indication: RENAL TRANSPLANT
  4. MYCOPHENOLATE MOFETIL [Suspect]
     Indication: RENAL TRANSPLANT

REACTIONS (3)
  - BLOOD CREATININE INCREASED [None]
  - KIDNEY TRANSPLANT REJECTION [None]
  - MEDICATION ERROR [None]
